FAERS Safety Report 4773964-4 (Version None)
Quarter: 2005Q3

REPORT INFORMATION
  Report Type: 
  Country: None (occurrence: None)
  Receive Date: 20050920
  Receipt Date: 20050915
  Transmission Date: 20060218
  Serious: Yes (Hospitalization)
  Sender: FDA-Public Use
  Company Number: US-SANOFI-SYNTHELABO-F03200500133

PATIENT
  Age: 60 Year
  Sex: Female

DRUGS (11)
  1. ELOXATIN [Suspect]
     Indication: COLON CANCER STAGE III
     Dosage: 50 MG/M2 1/1 CYCLE
     Route: 042
     Dates: start: 20050808, end: 20050808
  2. CETUXIMAB [Suspect]
     Route: 042
     Dates: start: 20050411, end: 20050411
  3. FLUOROURACIL [Suspect]
     Indication: COLON CANCER STAGE III
     Dosage: BOLUS DOSE OF 400 MG/M2 AND CONTINUOUS INFUSION OF 2400 MG/M2
     Route: 042
     Dates: start: 20050808, end: 20050808
  4. LEUCOVORIN [Suspect]
     Indication: COLON CANCER STAGE III
     Dosage: 400 MG/M2 1/1 CYCLE
     Route: 042
     Dates: start: 20050808, end: 20050808
  5. NEURONTIN [Suspect]
     Indication: DRUG USE FOR UNKNOWN INDICATION
     Dosage: UNK
     Route: 065
  6. PROTONIX [Suspect]
     Indication: DRUG USE FOR UNKNOWN INDICATION
     Dosage: UNK
     Route: 065
  7. VALTREX [Suspect]
     Indication: DRUG USE FOR UNKNOWN INDICATION
     Dosage: UNK
     Route: 065
  8. WELLBUTRIN [Suspect]
     Indication: DRUG USE FOR UNKNOWN INDICATION
     Dosage: UNK
     Route: 065
  9. ZOLOFT [Suspect]
     Indication: DRUG USE FOR UNKNOWN INDICATION
     Dosage: UNK
     Route: 065
  10. ATIVAN [Concomitant]
     Indication: DRUG USE FOR UNKNOWN INDICATION
     Dosage: UNK
     Route: 065
  11. COMPAZINE [Concomitant]
     Indication: DRUG USE FOR UNKNOWN INDICATION
     Dosage: UNK
     Route: 065

REACTIONS (5)
  - HAEMOGLOBIN DECREASED [None]
  - HAEMORRHAGE [None]
  - HAEMORRHOIDS [None]
  - PLATELET COUNT DECREASED [None]
  - THROMBOSIS [None]
